FAERS Safety Report 9162490 (Version 1)
Quarter: 2013Q1

REPORT INFORMATION
  Report Type: Spontaneous
  Country: IT (occurrence: IT)
  Receive Date: 20130314
  Receipt Date: 20130314
  Transmission Date: 20140127
  Serious: Yes (Hospitalization)
  Sender: FDA-Public Use
  Company Number: IT-ELI_LILLY_AND_COMPANY-IT201303001293

PATIENT
  Age: 53 Year
  Sex: Male

DRUGS (2)
  1. ZYPREXA [Suspect]
     Dosage: 10 UNK, UNK
     Route: 048
     Dates: start: 20130228, end: 20130228
  2. CLONAZEPAM [Concomitant]
     Dosage: 10 DF, UNK
     Dates: start: 20130228, end: 20130228

REACTIONS (4)
  - Bradykinesia [Recovering/Resolving]
  - Bradyphrenia [Recovering/Resolving]
  - Sopor [Recovering/Resolving]
  - Intentional overdose [Recovering/Resolving]
